FAERS Safety Report 15693864 (Version 2)
Quarter: 2019Q1

REPORT INFORMATION
  Report Type: Report from Study
  Country: CA (occurrence: CA)
  Receive Date: 20181206
  Receipt Date: 20190130
  Transmission Date: 20190417
  Serious: Yes (Other)
  Sender: FDA-Public Use
  Company Number: CA-ROCHE-2219005

PATIENT
  Age: 69 Year
  Sex: Male

DRUGS (8)
  1. CRESTOR [Concomitant]
     Active Substance: ROSUVASTATIN CALCIUM
  2. ESBRIET [Suspect]
     Active Substance: PIRFENIDONE
     Dosage: 1869 (3-2-2)/DAY
     Route: 048
     Dates: start: 20181022
  3. BISOPROLOL [Concomitant]
     Active Substance: BISOPROLOL
  4. ESBRIET [Suspect]
     Active Substance: PIRFENIDONE
     Indication: IDIOPATHIC PULMONARY FIBROSIS
     Route: 048
     Dates: start: 20180922, end: 201811
  5. ESBRIET [Suspect]
     Active Substance: PIRFENIDONE
     Route: 048
     Dates: start: 20181104
  6. ACETYLSALICYLIC ACID [Concomitant]
     Active Substance: ASPIRIN
  7. ESBRIET [Suspect]
     Active Substance: PIRFENIDONE
     Dosage: 1335(2-1-2)/DAY
     Route: 048
     Dates: start: 20181009
  8. ESBRIET [Suspect]
     Active Substance: PIRFENIDONE
     Dosage: 1602 (2-2-2)/DAY
     Route: 048
     Dates: start: 20181117

REACTIONS (8)
  - Hepatic enzyme increased [Unknown]
  - Nausea [Unknown]
  - Dysgeusia [Unknown]
  - Hepatotoxicity [Recovered/Resolved]
  - Ageusia [Unknown]
  - Feeding disorder [Unknown]
  - Alanine aminotransferase increased [Recovered/Resolved]
  - Blood bilirubin increased [Recovered/Resolved]

NARRATIVE: CASE EVENT DATE: 20181102
